FAERS Safety Report 10306285 (Version 2)
Quarter: 2014Q3

REPORT INFORMATION
  Report Type: Report from Study
  Country: MX (occurrence: MX)
  Receive Date: 20140715
  Receipt Date: 20140728
  Transmission Date: 20150326
  Serious: Yes (Other)
  Sender: FDA-Public Use
  Company Number: PHHY2013MX068398

PATIENT
  Age: 26 Year
  Sex: Female

DRUGS (6)
  1. TRILEPTAL [Suspect]
     Active Substance: OXCARBAZEPINE
     Dosage: 4 DF, DAILY (2 DF IN THE MORNING, 1 DF IN THE AFTERNOON, 2 DF AT NIGHT, EVERY 8 HS)
     Route: 048
     Dates: start: 20130627
  2. ANARA [Concomitant]
     Indication: DYSPEPSIA
     Dosage: UNK UKN, UNK
     Dates: start: 201101
  3. LAXOYA                             /00936101/ [Concomitant]
     Dosage: 4 UKN, DAILY
     Dates: start: 201201
  4. TRILEPTAL [Suspect]
     Active Substance: OXCARBAZEPINE
     Dosage: 4 DF, DAILY (2 DF IN THE MORNING, 2 DF AT NIGHT, EVERY 12 HS)
     Route: 048
     Dates: start: 200812, end: 20130627
  5. TRILEPTAL [Suspect]
     Active Substance: OXCARBAZEPINE
     Indication: CONVULSION
     Dosage: 4 DF, DAILY (2 DF IN THE MORNING, 1 DF IN THE AFTERNOON AND 1 DF AT NIGHT, EVERY 8 HS)
     Route: 048
     Dates: start: 200502, end: 200812
  6. RISPERDAL [Concomitant]
     Active Substance: RISPERIDONE
     Indication: ANXIETY
     Dosage: 1 UKN, DAILY
     Dates: start: 200504

REACTIONS (7)
  - Convulsion [Recovered/Resolved]
  - Syncope [Recovered/Resolved]
  - Intestinal dilatation [Recovered/Resolved]
  - Constipation [Recovered/Resolved]
  - Weight increased [Unknown]
  - Abnormal behaviour [Recovered/Resolved]
  - Drug administration error [Unknown]

NARRATIVE: CASE EVENT DATE: 200502
